FAERS Safety Report 14229951 (Version 1)
Quarter: 2017Q4

REPORT INFORMATION
  Report Type: Spontaneous
  Country: US (occurrence: None)
  Receive Date: 20171127
  Receipt Date: 20171127
  Transmission Date: 20180321
  Serious: Yes (Other)
  Sender: FDA-Public Use
  Company Number: None

PATIENT
  Age: 77 Year
  Sex: Female

DRUGS (1)
  1. FORTEO [Suspect]
     Active Substance: TERIPARATIDE
     Indication: PRODUCT USED FOR UNKNOWN INDICATION
     Route: 058
     Dates: start: 20161219, end: 20171125

REACTIONS (6)
  - Bone pain [None]
  - Dysphonia [None]
  - Dehydration [None]
  - Fatigue [None]
  - Arthralgia [None]
  - Visual impairment [None]

NARRATIVE: CASE EVENT DATE: 20171120
